FAERS Safety Report 16530262 (Version 22)
Quarter: 2021Q4

REPORT INFORMATION
  Report Type: Report from Study
  Country: JP (occurrence: JP)
  Receive Date: 20190704
  Receipt Date: 20211008
  Transmission Date: 20220303
  Serious: Yes (Hospitalization, Other)
  Sender: FDA-Public Use
  Company Number: JP-ASTELLAS-2019JP013046

PATIENT
  Age: 75 Year
  Sex: Male
  Weight: 45 kg

DRUGS (10)
  1. GILTERITINIB [Suspect]
     Active Substance: GILTERITINIB
     Indication: Acute myeloid leukaemia refractory
     Route: 048
     Dates: start: 20190618, end: 20190624
  2. GILTERITINIB [Suspect]
     Active Substance: GILTERITINIB
     Route: 048
     Dates: start: 20190708
  3. GILTERITINIB [Suspect]
     Active Substance: GILTERITINIB
     Route: 048
     Dates: start: 20190801
  4. GILTERITINIB [Suspect]
     Active Substance: GILTERITINIB
     Route: 048
     Dates: start: 20190814
  5. GILTERITINIB [Suspect]
     Active Substance: GILTERITINIB
     Route: 048
  6. GILTERITINIB [Suspect]
     Active Substance: GILTERITINIB
     Route: 048
     Dates: start: 20200117
  7. GILTERITINIB [Suspect]
     Active Substance: GILTERITINIB
     Route: 048
     Dates: start: 20200826
  8. GILTERITINIB [Suspect]
     Active Substance: GILTERITINIB
     Route: 048
     Dates: start: 20200915
  9. HYDREA [Suspect]
     Active Substance: HYDROXYUREA
     Indication: Acute myeloid leukaemia
     Dosage: 500 MG/DAY, UNKNOWN FREQ.
     Route: 048
     Dates: start: 20190614, end: 20190618
  10. HYDREA [Suspect]
     Active Substance: HYDROXYUREA
     Dosage: 500 MG/DAY, UNKNOWN FREQ.
     Route: 048
     Dates: start: 20210908

REACTIONS (11)
  - Condition aggravated [Unknown]
  - Neutropenia [Recovering/Resolving]
  - Neutrophil count decreased [Unknown]
  - Acute myeloid leukaemia recurrent [Recovered/Resolved]
  - Blast cell count increased [Not Recovered/Not Resolved]
  - Pneumonia [Recovered/Resolved]
  - Urinary tract infection [Recovered/Resolved]
  - Oropharyngeal pain [Recovered/Resolved]
  - Nasopharyngitis [Recovered/Resolved]
  - Off label use [Unknown]
  - Product use issue [Unknown]

NARRATIVE: CASE EVENT DATE: 20190623
